FAERS Safety Report 14642446 (Version 4)
Quarter: 2019Q1

REPORT INFORMATION
  Report Type: Spontaneous
  Country: ES (occurrence: ES)
  Receive Date: 20180315
  Receipt Date: 20190320
  Transmission Date: 20190417
  Serious: Yes (Hospitalization)
  Sender: FDA-Public Use
  Company Number: ES-SA-2017SA255136

PATIENT
  Age: 32 Year
  Sex: Female
  Weight: 57 kg

DRUGS (27)
  1. NOVORAPID [Suspect]
     Active Substance: INSULIN ASPART
     Dosage: 23 IU,QD
     Route: 058
     Dates: start: 20170131, end: 20170202
  2. NOVORAPID [Suspect]
     Active Substance: INSULIN ASPART
     Dosage: 38 UNK
     Route: 058
     Dates: start: 20170201
  3. APIDRA [Suspect]
     Active Substance: INSULIN GLULISINE
     Indication: TYPE 1 DIABETES MELLITUS
     Dosage: 21 IU, QD
     Route: 058
     Dates: start: 20171002
  4. POTASSIUM IODIDE. [Concomitant]
     Active Substance: POTASSIUM IODIDE
     Indication: PROPHYLAXIS
     Dosage: UNK UNK,UNK
     Route: 065
     Dates: start: 20161213
  5. PARACETAMOL [Concomitant]
     Active Substance: ACETAMINOPHEN
     Indication: HYPOGLYCAEMIA
     Dosage: UNK UNK,UNK
     Route: 065
     Dates: start: 20170306, end: 20170308
  6. LANTUS [Suspect]
     Active Substance: INSULIN GLARGINE
     Dosage: 19 IU, QD
     Route: 058
     Dates: start: 20170201, end: 20170202
  7. NOVORAPID [Suspect]
     Active Substance: INSULIN ASPART
     Dosage: 23 IU,QD
     Route: 058
     Dates: start: 20170202
  8. FLUOXETINE [Concomitant]
     Active Substance: FLUOXETINE HYDROCHLORIDE
     Indication: ANXIETY
     Dosage: UNK UNK,UNK
     Route: 065
     Dates: start: 20170320
  9. CLONAZEPAM. [Concomitant]
     Active Substance: CLONAZEPAM
     Indication: ANXIETY
     Dosage: UNK UNK,UNK
     Route: 065
     Dates: start: 20170320
  10. PARACETAMOL [Concomitant]
     Active Substance: ACETAMINOPHEN
     Indication: NASOPHARYNGITIS
     Dosage: UNK UNK,UNK
     Route: 065
     Dates: start: 20170106, end: 20170121
  11. NOVORAPID [Suspect]
     Active Substance: INSULIN ASPART
     Dosage: 40 IU,QD
     Route: 058
  12. NOVORAPID [Suspect]
     Active Substance: INSULIN ASPART
     Dosage: 38 IU,QD
     Route: 058
     Dates: start: 20170121
  13. CLOTRIMAZOLE. [Concomitant]
     Active Substance: CLOTRIMAZOLE
     Indication: VULVOVAGINITIS
     Dosage: UNK UNK,UNK
     Route: 065
     Dates: start: 20170321, end: 20170331
  14. FOLIC ACID. [Concomitant]
     Active Substance: FOLIC ACID
     Indication: PROPHYLAXIS
     Dosage: UNK UNK,UNK
     Route: 065
  15. DOXYLAMINE;PYRIDOXINE [Concomitant]
     Indication: VOMITING
     Dosage: UNK UNK, UNK
     Route: 065
     Dates: start: 20170615
  16. NOVORAPID [Suspect]
     Active Substance: INSULIN ASPART
     Dosage: 23 UNK
     Route: 058
     Dates: start: 20041112
  17. AMOXICILLIN. [Concomitant]
     Active Substance: AMOXICILLIN
     Indication: NASOPHARYNGITIS
     Dosage: UNK UNK,UNK
     Route: 065
     Dates: start: 20170110, end: 20170121
  18. CLOTRIMAZOLE. [Concomitant]
     Active Substance: CLOTRIMAZOLE
     Dosage: UNK UNK,UNK
     Route: 065
     Dates: start: 20170711, end: 20170717
  19. LANTUS [Suspect]
     Active Substance: INSULIN GLARGINE
     Dosage: 14 IU, QD
     Route: 058
     Dates: start: 20170904
  20. TRESIBA [Suspect]
     Active Substance: INSULIN DEGLUDEC
     Indication: TYPE 1 DIABETES MELLITUS
     Dosage: 12 IU, QD
     Route: 065
     Dates: start: 20171016
  21. ACFOL [Concomitant]
     Active Substance: FOLIC ACID
     Indication: PROPHYLAXIS
     Dosage: UNK UNK,UNK
     Route: 065
     Dates: start: 20161216
  22. NOVORAPID [Suspect]
     Active Substance: INSULIN ASPART
     Dosage: 38 IU,QD
     Route: 058
     Dates: start: 20170202
  23. NOVORAPID [Suspect]
     Active Substance: INSULIN ASPART
     Indication: TYPE 1 DIABETES MELLITUS
     Dosage: 38 IU,QD
     Route: 058
     Dates: start: 20041112, end: 20170202
  24. LANTUS [Suspect]
     Active Substance: INSULIN GLARGINE
     Indication: TYPE 1 DIABETES MELLITUS
     Dosage: 18 IU,QD
     Route: 058
     Dates: start: 20050512, end: 20170202
  25. NOVORAPID [Suspect]
     Active Substance: INSULIN ASPART
     Dosage: 39.9 IU,QD
     Route: 058
     Dates: start: 20170202
  26. PARACETAMOL [Concomitant]
     Active Substance: ACETAMINOPHEN
     Indication: BACK PAIN
     Dosage: UNK UNK,UNK
     Route: 065
     Dates: start: 20170615
  27. YODUK [Concomitant]
     Indication: PROPHYLAXIS

REACTIONS (6)
  - Hypoglycaemia [Recovered/Resolved]
  - Hypoglycaemia [Recovered/Resolved]
  - Biliary colic [Recovered/Resolved]
  - Hypoglycaemia [Not Recovered/Not Resolved]
  - Hypoglycaemia [Recovered/Resolved]
  - Exposure during pregnancy [Unknown]

NARRATIVE: CASE EVENT DATE: 20161107
